FAERS Safety Report 11420928 (Version 2)
Quarter: 2015Q4

REPORT INFORMATION
  Report Type: Spontaneous
  Country: US (occurrence: US)
  Receive Date: 20150826
  Receipt Date: 20151016
  Transmission Date: 20160304
  Serious: Yes (Hospitalization)
  Sender: FDA-Public Use
  Company Number: US-UNITED THERAPEUTICS-UNT-2015-009295

PATIENT
  Age: 65 Year
  Sex: Female
  Weight: 79.82 kg

DRUGS (6)
  1. ORENITRAM [Suspect]
     Active Substance: TREPROSTINIL
     Dosage: 11.25 MG, QD
     Route: 048
  2. ORENITRAM [Suspect]
     Active Substance: TREPROSTINIL
     Dosage: 11.125 MG, BID
     Route: 048
  3. ADCIRCA [Concomitant]
     Active Substance: TADALAFIL
     Indication: PRODUCT USED FOR UNKNOWN INDICATION
  4. ORENITRAM [Suspect]
     Active Substance: TREPROSTINIL
     Indication: PULMONARY ARTERIAL HYPERTENSION
     Dosage: 11 MG, TID
     Route: 048
     Dates: start: 20150625
  5. ORENITRAM [Suspect]
     Active Substance: TREPROSTINIL
     Indication: SCLERODERMA
     Dosage: UNK
     Route: 048
  6. TRACLEER [Concomitant]
     Active Substance: BOSENTAN
     Indication: PRODUCT USED FOR UNKNOWN INDICATION

REACTIONS (12)
  - Oxygen saturation decreased [Unknown]
  - Arthropod bite [Unknown]
  - Headache [Not Recovered/Not Resolved]
  - Skin lesion [Unknown]
  - Oedema peripheral [Recovered/Resolved]
  - Lymphadenopathy [Unknown]
  - Influenza like illness [Recovered/Resolved]
  - Nausea [Not Recovered/Not Resolved]
  - Flushing [Not Recovered/Not Resolved]
  - Dyspnoea [Unknown]
  - Pulmonary arterial pressure increased [Unknown]
  - Pain [Recovered/Resolved]

NARRATIVE: CASE EVENT DATE: 201507
